FAERS Safety Report 16101378 (Version 2)
Quarter: 2019Q1

REPORT INFORMATION
  Report Type: Spontaneous
  Country: US (occurrence: US)
  Receive Date: 20190321
  Receipt Date: 20190326
  Transmission Date: 20190418
  Serious: Yes (Death, Other)
  Sender: FDA-Public Use
  Company Number: US-PFIZER INC-2019121102

PATIENT
  Age: 64 Year
  Sex: Female

DRUGS (18)
  1. DOXORUBICIN HCL [Suspect]
     Active Substance: DOXORUBICIN HYDROCHLORIDE
     Dosage: UNK, CYCLIC (FIRST THREE COURSES WERE ADMINISTERED WITH STEP-WISE DOSE ESCALATION)
  2. DOXORUBICIN HCL [Suspect]
     Active Substance: DOXORUBICIN HYDROCHLORIDE
     Dosage: UNK, CYCLIC (INCREASED DOSES)
     Dates: end: 197702
  3. DACARBAZINE. [Suspect]
     Active Substance: DACARBAZINE
     Dosage: UNK, CYCLIC (FIRST THREE COURSES WERE ADMINISTERED WITH STEP-WISE DOSE ESCALATION)
  4. DACARBAZINE. [Suspect]
     Active Substance: DACARBAZINE
     Dosage: UNK, CYCLIC (INCREASED DOSES)
  5. DACARBAZINE. [Suspect]
     Active Substance: DACARBAZINE
     Dosage: UNK, MONTHLY (MAINTENANCE THERAPY)
     Dates: start: 197603
  6. CYCLOPHOSPHAMIDE. [Suspect]
     Active Substance: CYCLOPHOSPHAMIDE
     Dosage: UNK, CYCLIC (INCREASED DOSES)
  7. DACARBAZINE. [Suspect]
     Active Substance: DACARBAZINE
     Indication: LEIOMYOSARCOMA METASTATIC
     Dosage: UNK, CYCLIC (CYVADIC)
  8. CYCLOPHOSPHAMIDE. [Suspect]
     Active Substance: CYCLOPHOSPHAMIDE
     Dosage: UNK, MONTHLY (MAINTENANCE THERAPY)
     Dates: start: 197603
  9. VINCRISTINE SULFATE. [Suspect]
     Active Substance: VINCRISTINE SULFATE
     Dosage: UNK, CYCLIC (FIRST THREE COURSES WERE ADMINISTERED WITH STEP-WISE DOSE ESCALATION)
  10. VINCRISTINE SULFATE. [Suspect]
     Active Substance: VINCRISTINE SULFATE
     Dosage: UNK, CYCLIC (INCREASED DOSES)
  11. DOXORUBICIN HCL [Suspect]
     Active Substance: DOXORUBICIN HYDROCHLORIDE
     Indication: LEIOMYOSARCOMA METASTATIC
     Dosage: UNK, CYCLIC (CYVADIC)
  12. CISPLATIN. [Suspect]
     Active Substance: CISPLATIN
     Indication: LEIOMYOSARCOMA METASTATIC
     Dosage: 15 MG/M2, DAILY
     Dates: start: 197706
  13. CYCLOPHOSPHAMIDE. [Suspect]
     Active Substance: CYCLOPHOSPHAMIDE
     Indication: LEIOMYOSARCOMA METASTATIC
     Dosage: UNK, CYCLIC (CYVADIC)
  14. VINCRISTINE SULFATE. [Suspect]
     Active Substance: VINCRISTINE SULFATE
     Dosage: UNK, MONTHLY (MAINTENANCE THERAPY)
     Dates: start: 197603
  15. ACTINOMYCIN D [Suspect]
     Active Substance: DACTINOMYCIN
     Indication: LEIOMYOSARCOMA METASTATIC
     Dosage: UNK
     Dates: start: 197702
  16. VINCRISTINE SULFATE. [Suspect]
     Active Substance: VINCRISTINE SULFATE
     Indication: LEIOMYOSARCOMA METASTATIC
     Dosage: UNK, CYCLIC (CYVADIC)
  17. DOXORUBICIN HCL [Suspect]
     Active Substance: DOXORUBICIN HYDROCHLORIDE
     Dosage: UNK, MONTHLY (MAINTENANCE THERAPY)
     Dates: start: 197603
  18. CYCLOPHOSPHAMIDE. [Suspect]
     Active Substance: CYCLOPHOSPHAMIDE
     Dosage: UNK, CYCLIC (FIRST THREE COURSES WERE ADMINISTERED WITH STEP-WISE DOSE ESCALATION)

REACTIONS (2)
  - Acute myelomonocytic leukaemia [Fatal]
  - Second primary malignancy [Fatal]
